FAERS Safety Report 10334609 (Version 1)
Quarter: 2014Q3

REPORT INFORMATION
  Report Type: Spontaneous
  Country: BR (occurrence: BR)
  Receive Date: 20140723
  Receipt Date: 20140723
  Transmission Date: 20150326
  Serious: Yes (Other)
  Sender: FDA-Public Use
  Company Number: BR-ROCHE-1437459

PATIENT
  Sex: Female
  Weight: 63 kg

DRUGS (5)
  1. ARTRODAR [Concomitant]
     Active Substance: DIACEREIN
     Route: 065
  2. RIVOTRIL [Suspect]
     Active Substance: CLONAZEPAM
     Indication: PRODUCT USED FOR UNKNOWN INDICATION
     Route: 065
  3. DIURIX [Concomitant]
     Indication: HYPERTENSION
     Route: 065
  4. AMLODIPINE BESILATE [Concomitant]
     Active Substance: AMLODIPINE BESYLATE
     Indication: CARDIAC DISORDER
     Route: 065
  5. DIGESTIN [Concomitant]
     Indication: GASTRITIS
     Dosage: 1 TAB AFTER MEALS
     Route: 065

REACTIONS (4)
  - Urinary tract infection [Unknown]
  - Somnolence [Recovering/Resolving]
  - Syncope [Recovering/Resolving]
  - Muscular weakness [Unknown]

NARRATIVE: CASE EVENT DATE: 2013
